FAERS Safety Report 5963930-5 (Version None)
Quarter: 2008Q4

REPORT INFORMATION
  Report Type: 
  Country: None (occurrence: None)
  Receive Date: 20081121
  Receipt Date: 20081121
  Transmission Date: 20090506
  Serious: No
  Sender: FDA-Public Use
  Company Number: None

PATIENT
  Age: 31 Year
  Sex: Female
  Weight: 106.5953 kg

DRUGS (1)
  1. DILANTIN [Suspect]
     Dosage: 100MG - FIVE X DAY

REACTIONS (2)
  - CONVULSION [None]
  - DRUG INEFFECTIVE [None]
